FAERS Safety Report 16678235 (Version 1)
Quarter: 2019Q3

REPORT INFORMATION
  Report Type: Spontaneous
  Country: US (occurrence: US)
  Receive Date: 20190807
  Receipt Date: 20190807
  Transmission Date: 20191004
  Serious: No
  Sender: FDA-Public Use
  Company Number: US-DRREDDYS-USA/USA/18/0105086

PATIENT
  Age: 20 Year
  Sex: Male
  Weight: 97.7 kg

DRUGS (1)
  1. CIPROFLOXACIN. [Suspect]
     Active Substance: CIPROFLOXACIN
     Indication: COLITIS
     Route: 048
     Dates: start: 20181005, end: 20181007

REACTIONS (8)
  - Paraesthesia [Not Recovered/Not Resolved]
  - Musculoskeletal stiffness [Not Recovered/Not Resolved]
  - Tendonitis [Recovering/Resolving]
  - Product complaint [Unknown]
  - Pain [Recovering/Resolving]
  - Neuralgia [Recovering/Resolving]
  - Feeling abnormal [Recovering/Resolving]
  - Back pain [Recovering/Resolving]
